FAERS Safety Report 7034366-3 (Version None)
Quarter: 2010Q4

REPORT INFORMATION
  Report Type: 
  Country: None (occurrence: None)
  Receive Date: 20101008
  Receipt Date: 20100927
  Transmission Date: 20110411
  Serious: Yes (Other)
  Sender: FDA-Public Use
  Company Number: CA-JNJFOC-20100908858

PATIENT
  Sex: Male
  Weight: 98 kg

DRUGS (14)
  1. REMICADE [Suspect]
     Indication: CROHN'S DISEASE
     Route: 042
  2. REMICADE [Suspect]
     Dosage: WEEK 0,2,6 THEN EVERY 8 WEEKS
     Route: 042
  3. ATIVAN [Concomitant]
  4. ZOPLICONE [Concomitant]
  5. LYRICA [Concomitant]
  6. ELAVIL [Concomitant]
  7. LANTUS [Concomitant]
  8. HYDROMORPHONE HCL [Concomitant]
  9. NEXIUM [Concomitant]
  10. BUSCOPAN [Concomitant]
  11. INSULIN RAPID [Concomitant]
  12. TYLENOL [Concomitant]
     Indication: PREMEDICATION
     Route: 048
  13. BENADRYL [Concomitant]
     Indication: PREMEDICATION
     Route: 042
  14. HYDROCORTISONE [Concomitant]
     Indication: PREMEDICATION
     Route: 042

REACTIONS (11)
  - ARTHRALGIA [None]
  - BLOOD PRESSURE INCREASED [None]
  - CROHN'S DISEASE [None]
  - DIZZINESS [None]
  - FLUSHING [None]
  - INFLUENZA LIKE ILLNESS [None]
  - INFUSION RELATED REACTION [None]
  - MALAISE [None]
  - NAUSEA [None]
  - PYREXIA [None]
  - VOMITING [None]
